FAERS Safety Report 7221290-6 (Version None)
Quarter: 2011Q1

REPORT INFORMATION
  Report Type: 
  Country: None (occurrence: None)
  Receive Date: 20110112
  Receipt Date: 20110107
  Transmission Date: 20110831
  Serious: Yes (Death)
  Sender: FDA-Public Use
  Company Number: PHHY2011US01859

PATIENT
  Sex: Female

DRUGS (2)
  1. NEORAL [Suspect]
     Dosage: 50 MG, BID
  2. MYFORTIC [Suspect]
     Indication: RENAL TRANSPLANT
     Dosage: 360 MG, BID
     Route: 048

REACTIONS (2)
  - DIABETIC COMPLICATION [None]
  - RENAL FAILURE [None]
